FAERS Safety Report 5460703-7 (Version None)
Quarter: 2007Q3

REPORT INFORMATION
  Report Type: 
  Country: None (occurrence: None)
  Receive Date: 20070918
  Receipt Date: 20070907
  Transmission Date: 20080115
  Serious: Yes (Other)
  Sender: FDA-Public Use
  Company Number: 2007-03042

PATIENT
  Age: 70 Year
  Sex: Male
  Weight: 52.3 kg

DRUGS (12)
  1. VELCADE [Suspect]
     Indication: MULTIPLE MYELOMA
     Dosage: 1.30 MG/M2, INTRAVENOUS; 2.00 MG, INTRAVENOUS
     Route: 042
     Dates: start: 20070406, end: 20070406
  2. VELCADE [Suspect]
     Indication: MULTIPLE MYELOMA
     Dosage: 1.30 MG/M2, INTRAVENOUS; 2.00 MG, INTRAVENOUS
     Route: 042
     Dates: start: 20070413, end: 20070521
  3. ORGADRONE (DEXAMETHASONE SODIUM PHOSPHATE) [Concomitant]
  4. ASPIRIN [Concomitant]
  5. ALLOPURINOL [Concomitant]
  6. KYTRIL [Concomitant]
  7. EPOGEN [Concomitant]
  8. MAXIPIME [Concomitant]
  9. ZOMETA [Concomitant]
  10. HYDROCORTISONE SODIUM SUCCINATE [Concomitant]
  11. LASIX (FUROSEMIDE) INJECTION [Concomitant]
  12. BAKTAR (SULFAMETHOXAZOLE, TRIMETHOPRIM) TABLET [Concomitant]

REACTIONS (6)
  - BLOOD LACTATE DEHYDROGENASE INCREASED [None]
  - BLOOD URIC ACID INCREASED [None]
  - DIARRHOEA [None]
  - INFECTION [None]
  - PLATELET COUNT DECREASED [None]
  - PYREXIA [None]
